FAERS Safety Report 7828768-2 (Version None)
Quarter: 2011Q4

REPORT INFORMATION
  Report Type: 
  Country: None (occurrence: None)
  Receive Date: 20111020
  Receipt Date: 20110128
  Transmission Date: 20120403
  Serious: No
  Sender: FDA-Public Use
  Company Number: US-MYLANLABS-2011S1002136

PATIENT
  Age: 71 Year
  Sex: Female

DRUGS (1)
  1. CARVEDILOL [Suspect]
     Indication: ATRIAL FIBRILLATION
     Route: 048
     Dates: start: 20101124

REACTIONS (3)
  - ALOPECIA [None]
  - DIZZINESS [None]
  - HYPOAESTHESIA [None]
